FAERS Safety Report 5805750-8 (Version None)
Quarter: 2008Q3

REPORT INFORMATION
  Report Type: 
  Country: None (occurrence: None)
  Receive Date: 20080708
  Receipt Date: 20080624
  Transmission Date: 20090109
  Serious: Yes (Other)
  Sender: FDA-Public Use
  Company Number: 235064J08USA

PATIENT
  Age: 58 Year
  Sex: Female
  Weight: 90.7194 kg

DRUGS (9)
  1. REBIF [Suspect]
     Indication: MULTIPLE SCLEROSIS
     Dosage: 44 MCG, 3 IN 1 WEEKS, SUBCUTANEOUS
     Route: 058
     Dates: start: 20071026
  2. NEURONTIN [Concomitant]
  3. IBUPROFEN [Concomitant]
  4. PROCARDIA [Concomitant]
  5. PROVIGIL [Concomitant]
  6. AMITRIPTYLINE HCL [Concomitant]
  7. LISINOPRIL [Concomitant]
  8. VESICARE [Concomitant]
  9. TYLENOL WITH CODEINE (GALENIC /PARACETAMOL/ CODEINE/) [Concomitant]

REACTIONS (4)
  - ALOPECIA [None]
  - ATRIOVENTRICULAR BLOCK [None]
  - HEART VALVE INCOMPETENCE [None]
  - MYOCARDIAL INFARCTION [None]
